FAERS Safety Report 12206594 (Version 1)
Quarter: 2016Q1

REPORT INFORMATION
  Report Type: Spontaneous
  Country: IT (occurrence: IT)
  Receive Date: 20160324
  Receipt Date: 20160324
  Transmission Date: 20160526
  Serious: Yes (Death)
  Sender: FDA-Public Use
  Company Number: IT-ROCHE-1731019

PATIENT
  Age: 83 Year
  Sex: Female

DRUGS (11)
  1. DELTACORTENE [Concomitant]
     Active Substance: PREDNISONE
     Dosage: ^25 MG TABLETS^ 10 TABLETS
     Route: 048
  2. LANOXIN [Concomitant]
     Active Substance: DIGOXIN
     Route: 065
  3. PARACETAMOL [Concomitant]
     Active Substance: ACETAMINOPHEN
  4. BISOPROLOL FUMARATE. [Concomitant]
     Active Substance: BISOPROLOL FUMARATE
     Route: 065
  5. LASIX [Concomitant]
     Active Substance: FUROSEMIDE
  6. BISOPROLOL FUMARATE. [Concomitant]
     Active Substance: BISOPROLOL FUMARATE
     Route: 065
  7. XANAX [Concomitant]
     Active Substance: ALPRAZOLAM
     Route: 065
  8. COUMADIN [Concomitant]
     Active Substance: WARFARIN SODIUM
     Dosage: ^5 MG TABLETS^ 30 SCORED TABLETS
     Route: 048
  9. ROCEFIN [Suspect]
     Active Substance: CEFTRIAXONE SODIUM
     Indication: PNEUMONITIS
     Route: 042
     Dates: start: 20160215, end: 20160303
  10. CLARITHROMYCIN. [Suspect]
     Active Substance: CLARITHROMYCIN
     Indication: PNEUMONITIS
     Route: 048
     Dates: start: 20160220, end: 20160303
  11. PARIET [Concomitant]
     Active Substance: RABEPRAZOLE SODIUM
     Dosage: 14 X 20 MG GASTRO-RESISTANT TABLETS
     Route: 048

REACTIONS (1)
  - Agranulocytosis [Fatal]

NARRATIVE: CASE EVENT DATE: 20160303
